FAERS Safety Report 6274895-3 (Version None)
Quarter: 2009Q3

REPORT INFORMATION
  Report Type: 
  Country: None (occurrence: None)
  Receive Date: 20090717
  Receipt Date: 20090713
  Transmission Date: 20100115
  Serious: Yes (Death, Life-Threatening)
  Sender: FDA-Public Use
  Company Number: 2009SP015331

PATIENT
  Age: 73 Year
  Sex: Male

DRUGS (2)
  1. TEMODAL [Suspect]
     Indication: GLIOMATOSIS CEREBRI
     Dosage: 75 MG/M2; QD; PO
     Route: 048
     Dates: start: 20090421, end: 20090602
  2. EXCEGRAN [Concomitant]

REACTIONS (2)
  - BONE MARROW FAILURE [None]
  - PNEUMONIA [None]
